FAERS Safety Report 23945760 (Version 1)
Quarter: 2024Q2

REPORT INFORMATION
  Report Type: Spontaneous
  Country: US (occurrence: None)
  Receive Date: 20240605
  Receipt Date: 20240605
  Transmission Date: 20240715
  Serious: Yes (unspecified)
  Sender: FDA-Public Use
  Company Number: None

PATIENT
  Age: 62 Year
  Sex: Female

DRUGS (8)
  1. EMGALITY [Suspect]
     Active Substance: GALCANEZUMAB-GNLM
     Indication: Migraine
     Dosage: 120 MG MONTHLY SUBCUTANEOUS?
     Route: 058
  2. ESTRADIOL [Concomitant]
     Active Substance: ESTRADIOL
  3. EZETIMIBE [Concomitant]
     Active Substance: EZETIMIBE
  4. METOPROLOL [Concomitant]
     Active Substance: METOPROLOL
  5. PROPRANOLOL [Concomitant]
     Active Substance: PROPRANOLOL HYDROCHLORIDE
  6. ROSUVASTATIN [Concomitant]
     Active Substance: ROSUVASTATIN
  7. SUMATRIPTAN [Concomitant]
     Active Substance: SUMATRIPTAN
  8. VAGIFEM [Concomitant]
     Active Substance: ESTRADIOL

REACTIONS (5)
  - Injection site reaction [None]
  - Injection site erythema [None]
  - Injection site swelling [None]
  - Injection site pruritus [None]
  - Therapy change [None]

NARRATIVE: CASE EVENT DATE: 20240301
